FAERS Safety Report 7441063-9 (Version None)
Quarter: 2011Q2

REPORT INFORMATION
  Report Type: 
  Country: None (occurrence: None)
  Receive Date: 20110427
  Receipt Date: 20110419
  Transmission Date: 20111010
  Serious: No
  Sender: FDA-Public Use
  Company Number: FR-GILEAD-2010-0032190

PATIENT
  Sex: Female

DRUGS (5)
  1. VIREAD [Suspect]
     Indication: HEPATITIS B
  2. LACTULOSE [Concomitant]
     Indication: ENCEPHALOPATHY
  3. PROPRANOLOL [Concomitant]
     Indication: HAEMORRHAGE
  4. HEPSERA [Suspect]
     Indication: HEPATITIS B
  5. ZEFFIX [Concomitant]
     Indication: HEPATITIS B

REACTIONS (1)
  - PREMATURE LABOUR [None]
